FAERS Safety Report 14713996 (Version 3)
Quarter: 2023Q2

REPORT INFORMATION
  Report Type: Spontaneous
  Country: FR (occurrence: FR)
  Receive Date: 20180404
  Receipt Date: 20230505
  Transmission Date: 20230722
  Serious: Yes (Hospitalization)
  Sender: FDA-Public Use
  Company Number: FR-AFSSAPS-RE20180331

PATIENT
  Age: 87 Year
  Sex: Female

DRUGS (3)
  1. BUDESONIDE [Suspect]
     Active Substance: BUDESONIDE
     Indication: Wheezing
     Dosage: 3 DOSAGE FORM, ONCE A DAY
     Route: 055
     Dates: start: 20180306
  2. CEFTRIAXONE [Suspect]
     Active Substance: CEFTRIAXONE
     Indication: Antibiotic prophylaxis
     Dosage: 1 GRAM
     Route: 042
     Dates: start: 20180305, end: 20180313
  3. IPRATROPIUM [Suspect]
     Active Substance: IPRATROPIUM
     Indication: Wheezing
     Dosage: 3 DOSAGE FORM, ONCE A DAY
     Route: 055
     Dates: start: 20180306

REACTIONS (4)
  - Pruritus [Recovered/Resolved]
  - Macule [Recovered/Resolved]
  - Aphthous ulcer [Recovered/Resolved]
  - Rash papular [Recovered/Resolved]

NARRATIVE: CASE EVENT DATE: 20180307
